FAERS Safety Report 18267764 (Version 1)
Quarter: 2020Q3

REPORT INFORMATION
  Report Type: Spontaneous
  Country: FR (occurrence: FR)
  Receive Date: 20200915
  Receipt Date: 20200915
  Transmission Date: 20201103
  Serious: Yes (Other)
  Sender: FDA-Public Use
  Company Number: FR-TEVA-2020-FR-1826695

PATIENT
  Age: 21 Year
  Sex: Female

DRUGS (2)
  1. ALPRAZOLAM. [Suspect]
     Active Substance: ALPRAZOLAM
     Indication: DRUG ABUSE
     Dosage: UNSPECIFIED
     Route: 048
  2. CANNABIS [Suspect]
     Active Substance: CANNABIS SATIVA SUBSP. INDICA TOP
     Indication: DRUG ABUSE
     Dosage: UNSPECIFIED
     Route: 055
     Dates: start: 2018

REACTIONS (3)
  - Loss of consciousness [Recovered/Resolved]
  - Memory impairment [Recovered/Resolved]
  - Drug abuse [Not Recovered/Not Resolved]
